FAERS Safety Report 7807940-1 (Version None)
Quarter: 2011Q4

REPORT INFORMATION
  Report Type: 
  Country: None (occurrence: None)
  Receive Date: 20111011
  Receipt Date: 20111011
  Transmission Date: 20120403
  Serious: Yes (Death)
  Sender: FDA-Public Use
  Company Number: None

PATIENT
  Sex: Male

DRUGS (8)
  1. SERTRALINE HYDROCHLORIDE [Concomitant]
     Route: 048
  2. KEPPRA [Concomitant]
     Route: 048
  3. TRILEPTAL [Concomitant]
     Route: 048
  4. DEPAKOTE ER [Concomitant]
     Route: 048
  5. MULTI-VITAMIN [Concomitant]
     Route: 048
  6. EFFEXOR XR [Concomitant]
  7. KEPPRA [Concomitant]
     Route: 048
  8. VENLAFAXINE HCL EXTENDED-RELEASE [Suspect]
     Indication: DEPRESSION
     Dosage: 150MG
     Route: 048

REACTIONS (2)
  - CONVULSION [None]
  - THERAPEUTIC RESPONSE INCREASED [None]
